FAERS Safety Report 6382019-7 (Version None)
Quarter: 2009Q3

REPORT INFORMATION
  Report Type: 
  Country: None (occurrence: None)
  Receive Date: 20090925
  Receipt Date: 20090915
  Transmission Date: 20100115
  Serious: Yes (Hospitalization)
  Sender: FDA-Public Use
  Company Number: 239305K09USA

PATIENT
  Age: 58 Year
  Sex: Female
  Weight: 72 kg

DRUGS (3)
  1. REBIF [Suspect]
     Indication: MULTIPLE SCLEROSIS
     Dosage: 44 MCG, 3 IN 1 WEEKS, SUBCUTANEOUS
     Route: 058
     Dates: start: 20090201
  2. DILANTIN [Concomitant]
  3. VYTORIN [Concomitant]

REACTIONS (6)
  - CHOLANGIOLITIS [None]
  - DRUG LEVEL DECREASED [None]
  - ESCHERICHIA INFECTION [None]
  - GRAND MAL CONVULSION [None]
  - HEPATITIS CHOLESTATIC [None]
  - PATHOGEN RESISTANCE [None]
